FAERS Safety Report 6569954-1 (Version None)
Quarter: 2010Q1

REPORT INFORMATION
  Report Type: 
  Country: None (occurrence: None)
  Receive Date: 20100204
  Receipt Date: 20100126
  Transmission Date: 20100710
  Serious: Yes (Hospitalization)
  Sender: FDA-Public Use
  Company Number: US-ELI_LILLY_AND_COMPANY-US200904002172

PATIENT
  Sex: Female
  Weight: 102 kg

DRUGS (12)
  1. BYETTA [Suspect]
     Indication: TYPE 2 DIABETES MELLITUS
     Dosage: 5 UG, 2/D
     Route: 058
     Dates: start: 20060101
  2. BYETTA [Suspect]
     Dosage: 10 UG, 2/D
     Route: 058
  3. BYETTA [Suspect]
     Dosage: 10 UG, 2/D
     Route: 058
  4. GLUCOPHAGE [Concomitant]
     Indication: TYPE 2 DIABETES MELLITUS
     Dosage: 1000 MG, DAILY (1/D)
     Route: 048
     Dates: end: 20080101
  5. NEXIUM [Concomitant]
     Indication: GASTROOESOPHAGEAL REFLUX DISEASE
  6. CRESTOR [Concomitant]
     Indication: HYPERCHOLESTEROLAEMIA
     Route: 048
  7. METOPROLOL TARTRATE [Concomitant]
     Indication: CARDIAC DISORDER
  8. DIURETICS [Concomitant]
  9. LISINOPRIL [Concomitant]
     Indication: BLOOD PRESSURE
  10. THYROID THERAPY [Concomitant]
     Indication: THYROID THERAPY
  11. ZETIA [Concomitant]
     Indication: HYPERCHOLESTEROLAEMIA
     Route: 048
  12. METFORMIN HCL [Concomitant]
     Indication: TYPE 2 DIABETES MELLITUS
     Route: 048

REACTIONS (21)
  - BLOOD GLUCOSE INCREASED [None]
  - COLON CANCER STAGE III [None]
  - CONSTIPATION [None]
  - DRUG INEFFECTIVE [None]
  - HAEMATOCHEZIA [None]
  - HAEMORRHOIDS [None]
  - INCREASED UPPER AIRWAY SECRETION [None]
  - MOBILITY DECREASED [None]
  - MUSCLE SPASMS [None]
  - MYALGIA [None]
  - NEUROPATHY PERIPHERAL [None]
  - OROPHARYNGEAL BLISTERING [None]
  - PULMONARY HYPERTENSION [None]
  - RECTAL HAEMORRHAGE [None]
  - RENAL DISORDER [None]
  - SKIN DISCOLOURATION [None]
  - SKIN EXFOLIATION [None]
  - SLEEP APNOEA SYNDROME [None]
  - VOMITING [None]
  - WALKING AID USER [None]
  - WEIGHT DECREASED [None]
